FAERS Safety Report 12855774 (Version 2)
Quarter: 2016Q4

REPORT INFORMATION
  Report Type: Report from Study
  Country: MX (occurrence: MX)
  Receive Date: 20161018
  Receipt Date: 20161018
  Transmission Date: 20170207
  Serious: Yes (Other)
  Sender: FDA-Public Use
  Company Number: PHHY2016MX142488

PATIENT
  Sex: Female

DRUGS (1)
  1. EXFORGE HCT [Suspect]
     Active Substance: AMLODIPINE BESYLATE\HYDROCHLOROTHIAZIDE\VALSARTAN
     Indication: HYPERTENSION
     Dosage: 2 DF (AMLODIPINE 5 MG/HYDROCHLOROTHIAZIDE 12.5 MG/VALSARTAN 160 MG), UNK
     Route: 065

REACTIONS (3)
  - Cardiac disorder [Unknown]
  - Heart rate decreased [Unknown]
  - Inappropriate schedule of drug administration [Unknown]
